FAERS Safety Report 4829796-1 (Version None)
Quarter: 2005Q4

REPORT INFORMATION
  Report Type: 
  Country: None (occurrence: None)
  Receive Date: 20051028
  Receipt Date: 20050708
  Transmission Date: 20060501
  Serious: No
  Sender: FDA-Public Use
  Company Number: COT_0128_2005

PATIENT
  Age: 64 Year
  Sex: Female
  Weight: 77.1115 kg

DRUGS (20)
  1. VENTAVIS [Suspect]
     Indication: PULMONARY HYPERTENSION
     Dosage: 30 MCG DAILY IH
     Route: 055
     Dates: start: 20050705
  2. SINGULAIR [Concomitant]
  3. FUROSEMIDE [Concomitant]
  4. MAVIK [Concomitant]
  5. KLOR-CON [Concomitant]
  6. MULTI-VITAMIN [Concomitant]
  7. CALCIUM GLUCONATE [Concomitant]
  8. TYLENOL [Concomitant]
  9. COUMADIN [Concomitant]
  10. PRAVACHOL [Concomitant]
  11. ZOLOFT [Concomitant]
  12. NADOLOL [Concomitant]
  13. NEXIUM [Concomitant]
  14. ZETIA [Concomitant]
  15. DIGOXIN [Concomitant]
  16. ADVAIR DISKUS 100/50 [Concomitant]
  17. EPIPEN [Concomitant]
  18. ZYRTEC [Concomitant]
  19. ALBUTEROL [Concomitant]
  20. PRENATAL VITAMINS [Concomitant]

REACTIONS (1)
  - CHEST DISCOMFORT [None]
